FAERS Safety Report 17429730 (Version 1)
Quarter: 2020Q1

REPORT INFORMATION
  Report Type: Spontaneous
  Country: US (occurrence: US)
  Receive Date: 20200218
  Receipt Date: 20200218
  Transmission Date: 20200409
  Serious: No
  Sender: FDA-Public Use
  Company Number: US-BAYER-2020-026706

PATIENT
  Age: 46 Year
  Sex: Female

DRUGS (1)
  1. PRAZIQUANTEL. [Suspect]
     Active Substance: PRAZIQUANTEL
     Indication: SCHISTOSOMA TEST POSITIVE
     Dosage: 40 MG, BID

REACTIONS (4)
  - Rash [None]
  - Pruritus [None]
  - Abdominal pain upper [None]
  - Hyperaesthesia [None]
